FAERS Safety Report 7586451-5 (Version None)
Quarter: 2011Q3

REPORT INFORMATION
  Report Type: 
  Country: None (occurrence: None)
  Receive Date: 20110701
  Receipt Date: 20110621
  Transmission Date: 20111222
  Serious: Yes (Hospitalization)
  Sender: FDA-Public Use
  Company Number: D0071791A

PATIENT
  Sex: Female
  Weight: 83 kg

DRUGS (2)
  1. TOPIRAMATE [Suspect]
     Indication: EPILEPSY
     Dosage: 50MG TWICE PER DAY
     Route: 065
     Dates: start: 20080101
  2. LAMICTAL [Suspect]
     Indication: EPILEPSY
     Dosage: 200MG TWICE PER DAY
     Route: 048
     Dates: start: 20060101

REACTIONS (1)
  - MENOMETRORRHAGIA [None]
